FAERS Safety Report 6252419-4 (Version None)
Quarter: 2009Q3

REPORT INFORMATION
  Report Type: 
  Country: None (occurrence: None)
  Receive Date: 20090701
  Receipt Date: 20090624
  Transmission Date: 20100115
  Serious: No
  Sender: FDA-Public Use
  Company Number: CA-JNJFOC-20090603722

PATIENT
  Sex: Male
  Weight: 63.5 kg

DRUGS (1)
  1. DURAGESIC-100 [Suspect]
     Indication: PAIN MANAGEMENT
     Route: 062

REACTIONS (5)
  - BURNING SENSATION [None]
  - DEVICE LEAKAGE [None]
  - DRUG ADMINISTERED AT INAPPROPRIATE SITE [None]
  - ERYTHEMA [None]
  - WRONG TECHNIQUE IN DRUG USAGE PROCESS [None]
